FAERS Safety Report 14355157 (Version 1)
Quarter: 2018Q1

REPORT INFORMATION
  Report Type: Spontaneous
  Country: US (occurrence: US)
  Receive Date: 20180105
  Receipt Date: 20180105
  Transmission Date: 20180509
  Serious: Yes (Life-Threatening, Other)
  Sender: FDA-Public Use
  Company Number: US-MYLANLABS-2017M1082596

PATIENT
  Age: 63 Year
  Sex: Male

DRUGS (1)
  1. BACITRACIN. [Suspect]
     Active Substance: BACITRACIN
     Indication: INFECTION PROPHYLAXIS
     Dosage: SCLERAL BUCKLE WAS SOAKED IN 150 U/ML BACITRACIN SOLUTION
     Route: 050

REACTIONS (1)
  - Anaphylactic reaction [Recovered/Resolved]
